FAERS Safety Report 24142621 (Version 2)
Quarter: 2024Q3

REPORT INFORMATION
  Report Type: Spontaneous
  Country: JP (occurrence: JP)
  Receive Date: 20240726
  Receipt Date: 20240801
  Transmission Date: 20241016
  Serious: Yes (Other)
  Sender: CARA THERAPEUTICS
  Company Number: JP-CARA THERAPEUTICS, INC.-2024-00360-JP

PATIENT
  Age: 74 Year
  Sex: Male

DRUGS (5)
  1. KORSUVA [Suspect]
     Active Substance: DIFELIKEFALIN ACETATE
     Indication: Pruritus
     Dosage: 35 ?G/ (35 ?G/     )
     Route: 042
     Dates: start: 20240515, end: 20240607
  2. EVOCALCET [Concomitant]
     Active Substance: EVOCALCET
  3. TELMISARTAN [Concomitant]
     Active Substance: TELMISARTAN
  4. CILOSTAZOL [Concomitant]
     Active Substance: CILOSTAZOL
  5. NIFEDIPINE [Concomitant]
     Active Substance: NIFEDIPINE

REACTIONS (1)
  - Drug eruption [Recovered/Resolved]
